FAERS Safety Report 15540841 (Version 10)
Quarter: 2021Q3

REPORT INFORMATION
  Report Type: Spontaneous
  Country: GB (occurrence: GB)
  Receive Date: 20181023
  Receipt Date: 20210802
  Transmission Date: 20211014
  Serious: Yes (Death)
  Sender: FDA-Public Use
  Company Number: PHHY2018GB128646

PATIENT
  Age: 61 Year
  Sex: Female

DRUGS (61)
  1. CAPECITABINE. [Suspect]
     Active Substance: CAPECITABINE
     Dosage: 1500 MG, QD
     Route: 048
     Dates: start: 20170210, end: 20170728
  2. VINORELBINE [Suspect]
     Active Substance: VINORELBINE TARTRATE
     Dosage: 60 MG (SOLUTION FOR INJECTION)
     Route: 065
     Dates: start: 20180503, end: 20180508
  3. NERATINIB [Suspect]
     Active Substance: NERATINIB
     Indication: HER2 POSITIVE BREAST CANCER
     Dosage: 40 MG, QD
     Route: 048
     Dates: start: 20170901, end: 20180314
  4. NERATINIB [Suspect]
     Active Substance: NERATINIB
     Dosage: 240 MG, QD
     Route: 048
     Dates: start: 20170901, end: 20180314
  5. NERATINIB [Suspect]
     Active Substance: NERATINIB
     Dosage: 240 MG, QD
     Route: 048
     Dates: start: 20180223, end: 20180420
  6. MUPIROCIN. [Concomitant]
     Active Substance: MUPIROCIN
     Indication: PROPHYLAXIS
     Dosage: 6 %, QD
     Route: 061
     Dates: start: 20160620, end: 20160624
  7. MEROPENEM. [Concomitant]
     Active Substance: MEROPENEM
     Dosage: 6 PERCENT, QD
     Route: 061
     Dates: start: 20160620, end: 20160624
  8. TRASTUZUMAB EMTANSINE [Suspect]
     Active Substance: ADO-TRASTUZUMAB EMTANSINE
     Indication: HER2 POSITIVE BREAST CANCER
     Dosage: 172 MG, Q3W
     Route: 042
     Dates: start: 20151201, end: 20151221
  9. TRASTUZUMAB EMTANSINE [Suspect]
     Active Substance: ADO-TRASTUZUMAB EMTANSINE
     Dosage: 140 MG, Q3W
     Route: 042
     Dates: start: 20160215, end: 20160215
  10. CLAVULANATE POTASSIUM [Concomitant]
     Active Substance: CLAVULANATE POTASSIUM
     Dosage: 625 MG, QD
     Route: 065
     Dates: start: 20170222, end: 20170228
  11. VINORELBINE [Suspect]
     Active Substance: VINORELBINE TARTRATE
     Indication: BREAST CANCER METASTATIC
     Dosage: 60 MG
     Route: 065
     Dates: start: 20180530, end: 20180608
  12. TRASTUZUMAB. [Suspect]
     Active Substance: TRASTUZUMAB
     Indication: HER2 POSITIVE BREAST CANCER
     Dosage: 300 MG, Q3W (DOSE MODIFIED)
     Route: 042
     Dates: start: 20150629, end: 20151102
  13. TRASTUZUMAB. [Suspect]
     Active Substance: TRASTUZUMAB
     Dosage: UNK UNK, Q3W (DOSE REDUCED)
     Route: 042
  14. ERIBULIN MESILATE [Suspect]
     Active Substance: ERIBULIN
     Indication: HER2 POSITIVE BREAST CANCER
     Dosage: 1.5 MG, Q3W
     Route: 042
     Dates: start: 20160411, end: 20160624
  15. ERIBULIN MESILATE [Suspect]
     Active Substance: ERIBULIN
     Indication: BREAST CANCER METASTATIC
     Dosage: 1.5 MG, Q2W
     Route: 042
  16. NERATINIB [Suspect]
     Active Substance: NERATINIB
     Indication: BREAST CANCER METASTATIC
     Dosage: 40 MG, QD
     Route: 048
  17. CO?AMOXICLAV [Concomitant]
     Active Substance: AMOXICILLIN\CLAVULANATE POTASSIUM
     Dosage: 1875 MG, QD
     Route: 048
     Dates: start: 20170222, end: 20170228
  18. FOLIC ACID. [Concomitant]
     Active Substance: FOLIC ACID
     Indication: BLOOD FOLATE DECREASED
     Dosage: 5 MG, QD
     Route: 048
     Dates: start: 20150828, end: 201708
  19. CAPECITABINE. [Suspect]
     Active Substance: CAPECITABINE
     Indication: HER2 POSITIVE BREAST CANCER
     Dosage: 3000 MG, QD
     Route: 048
     Dates: start: 20170210, end: 20170728
  20. VINORELBINE [Suspect]
     Active Substance: VINORELBINE TARTRATE
     Dosage: 60 MG
     Route: 065
     Dates: start: 20180608, end: 20180810
  21. TRASTUZUMAB. [Suspect]
     Active Substance: TRASTUZUMAB
     Dosage: 350 MG (LOADING DOSE)
     Route: 042
     Dates: start: 20150601, end: 20150601
  22. TRASTUZUMAB. [Suspect]
     Active Substance: TRASTUZUMAB
     Dosage: 300 MG, Q3W
     Route: 042
     Dates: start: 20150629, end: 20151102
  23. TRASTUZUMAB. [Suspect]
     Active Substance: TRASTUZUMAB
     Dosage: 172 MG, Q3W
     Route: 042
     Dates: start: 20151201, end: 20151221
  24. NERATINIB [Suspect]
     Active Substance: NERATINIB
     Route: 048
  25. MUPIROCIN. [Concomitant]
     Active Substance: MUPIROCIN
     Dosage: 2 %
     Route: 061
     Dates: start: 20160620, end: 20160624
  26. LOPERAMIDE [Concomitant]
     Active Substance: LOPERAMIDE
     Dosage: 2 MG
     Route: 048
     Dates: start: 20170901, end: 20171124
  27. SANDO K [Concomitant]
     Indication: NUTRITIONAL SUPPLEMENTATION
     Dosage: 2 DF, QD
     Route: 048
     Dates: start: 20150828, end: 20150830
  28. IRRADIATED RED BLOOD CELLS?LEUKOCYTES REDUCED [Concomitant]
     Active Substance: HUMAN RED BLOOD CELL
     Indication: PRODUCT USED FOR UNKNOWN INDICATION
     Dosage: 2 UNIT, QD
     Route: 042
     Dates: start: 20160702, end: 20160702
  29. TRASTUZUMAB. [Suspect]
     Active Substance: TRASTUZUMAB
     Dosage: 1 DF, Q3W
     Route: 065
  30. TRASTUZUMAB. [Suspect]
     Active Substance: TRASTUZUMAB
     Dosage: 1 MG, Q3W
     Route: 042
  31. TRASTUZUMAB EMTANSINE [Suspect]
     Active Substance: ADO-TRASTUZUMAB EMTANSINE
     Dosage: 172 MG, Q3W
     Route: 042
     Dates: start: 20151201
  32. PERTUZUMAB. [Suspect]
     Active Substance: PERTUZUMAB
     Indication: HER2 POSITIVE BREAST CANCER
     Dosage: 840 MG (LOADING DOSE)
     Route: 042
  33. PERTUZUMAB. [Suspect]
     Active Substance: PERTUZUMAB
     Dosage: 420 MG, Q3W (TARGETED THERAPY)
     Route: 042
  34. PERTUZUMAB. [Suspect]
     Active Substance: PERTUZUMAB
     Dosage: LOADING DOSE (1 DF)
     Route: 042
  35. CO?AMOXICLAV [Concomitant]
     Active Substance: AMOXICILLIN\CLAVULANATE POTASSIUM
     Indication: LOWER RESPIRATORY TRACT INFECTION
     Dosage: 625 MG
     Route: 048
     Dates: start: 20170222, end: 20170222
  36. DOMPERIDONE [Concomitant]
     Active Substance: DOMPERIDONE
     Indication: PRODUCT USED FOR UNKNOWN INDICATION
     Dosage: 30 MG, QD
     Route: 048
     Dates: start: 20160406, end: 20160421
  37. CIPROFLOXACIN. [Concomitant]
     Active Substance: CIPROFLOXACIN
     Indication: PRODUCT USED FOR UNKNOWN INDICATION
     Dosage: 500 MG, QD
     Route: 048
     Dates: start: 20151218, end: 20151225
  38. GENTAMICIN. [Concomitant]
     Active Substance: GENTAMICIN
     Indication: LOWER RESPIRATORY TRACT INFECTION
     Dosage: UNK
     Route: 042
     Dates: start: 20170213, end: 201702
  39. MEROPENEM. [Concomitant]
     Active Substance: MEROPENEM
     Indication: LOWER RESPIRATORY TRACT INFECTION
     Dosage: UNK
     Route: 042
     Dates: start: 20170215, end: 20170221
  40. MEROPENEM. [Concomitant]
     Active Substance: MEROPENEM
     Dosage: 2 PERCENT, QD
     Route: 061
     Dates: start: 20160620, end: 20160624
  41. CAPECITABINE. [Suspect]
     Active Substance: CAPECITABINE
     Indication: BREAST CANCER METASTATIC
     Dosage: 1500 MG (0.5 DAY)
     Route: 048
  42. DOCETAXEL. [Suspect]
     Active Substance: DOCETAXEL
     Dosage: 86 MG, Q3W (DOSE DISCONTINUED)
     Route: 042
     Dates: start: 20150629, end: 20150720
  43. TRASTUZUMAB. [Suspect]
     Active Substance: TRASTUZUMAB
     Dosage: 140 MG, Q3W
     Route: 042
     Dates: start: 20160215, end: 20160215
  44. PERTUZUMAB. [Suspect]
     Active Substance: PERTUZUMAB
     Dosage: TARGETED THERAPY
     Route: 042
  45. TAZOCIN [Concomitant]
     Active Substance: PIPERACILLIN SODIUM\TAZOBACTAM SODIUM
     Indication: LOWER RESPIRATORY TRACT INFECTION
     Dosage: UNK
     Route: 042
     Dates: start: 20170213, end: 20170215
  46. AMLODIPINE [Concomitant]
     Active Substance: AMLODIPINE BESYLATE
     Indication: PRODUCT USED FOR UNKNOWN INDICATION
     Dosage: 10 MG, UNK
     Route: 048
  47. FILGRASTIM [Concomitant]
     Active Substance: FILGRASTIM
     Dosage: EVERY DAY FOR 3 DAYS STARTING ON DAYS 3 AND 11
     Route: 058
     Dates: start: 20160421, end: 20160712
  48. DOCETAXEL. [Suspect]
     Active Substance: DOCETAXEL
     Indication: HER2 POSITIVE BREAST CANCER
     Dosage: 108 MG, Q3W (DOSE MODIFIED)
     Route: 042
     Dates: start: 20150602, end: 20150602
  49. TRASTUZUMAB. [Suspect]
     Active Substance: TRASTUZUMAB
     Dosage: 140 MG, QW
     Route: 042
  50. TRASTUZUMAB EMTANSINE [Suspect]
     Active Substance: ADO-TRASTUZUMAB EMTANSINE
     Dosage: 140 MG, Q3W
     Route: 042
     Dates: start: 20151201, end: 20160215
  51. LOPERAMIDE [Concomitant]
     Active Substance: LOPERAMIDE
     Indication: DIARRHOEA
     Dosage: 2 MG, UNK
     Route: 048
     Dates: start: 20170901, end: 20171124
  52. CIPROFLOXACIN. [Concomitant]
     Active Substance: CIPROFLOXACIN
     Dosage: 1000 MG, QD
     Route: 065
     Dates: start: 20151218, end: 20151225
  53. IRRADIATED RED BLOOD CELLS?LEUKOCYTES REDUCED [Concomitant]
     Active Substance: HUMAN RED BLOOD CELL
     Dosage: 2 UNIT, QD
     Route: 042
     Dates: start: 20180526, end: 20180526
  54. VINORELBINE [Suspect]
     Active Substance: VINORELBINE TARTRATE
     Indication: HER2 POSITIVE BREAST CANCER
     Dosage: 60 MG
     Route: 048
  55. TRASTUZUMAB. [Suspect]
     Active Substance: TRASTUZUMAB
     Dosage: 172 MG, QW
     Route: 042
  56. PERTUZUMAB. [Suspect]
     Active Substance: PERTUZUMAB
     Indication: BREAST CANCER METASTATIC
     Dosage: 420 MG, Q3W (TARGETED THERAPY)
     Route: 042
     Dates: start: 20150622, end: 20151102
  57. FOLIC ACID. [Concomitant]
     Active Substance: FOLIC ACID
     Indication: BLOOD FOLATE DECREASED
  58. MUPIROCIN. [Concomitant]
     Active Substance: MUPIROCIN
     Dosage: 5 DAYS
     Route: 061
     Dates: start: 20160620, end: 20160624
  59. DOMPERIDONE [Concomitant]
     Active Substance: DOMPERIDONE
     Dosage: 10 MG
     Route: 048
     Dates: start: 20160406, end: 20160421
  60. FILGRASTIM [Concomitant]
     Active Substance: FILGRASTIM
     Indication: PRODUCT USED FOR UNKNOWN INDICATION
     Dosage: 300 UG, QD
     Route: 058
     Dates: start: 20150725, end: 20150730
  61. CLAVULANATE POTASSIUM [Concomitant]
     Active Substance: CLAVULANATE POTASSIUM
     Indication: PRODUCT USED FOR UNKNOWN INDICATION
     Dosage: 1875 MG, QD
     Route: 065
     Dates: start: 20170222, end: 20170228

REACTIONS (9)
  - Disease progression [Fatal]
  - Off label use [Unknown]
  - Alopecia [Not Recovered/Not Resolved]
  - Fatigue [Recovered/Resolved]
  - Product use issue [Unknown]
  - Intentional product misuse [Unknown]
  - Neuropathy peripheral [Recovering/Resolving]
  - Decreased appetite [Recovered/Resolved]
  - Hypoaesthesia [Unknown]

NARRATIVE: CASE EVENT DATE: 20150717
